FAERS Safety Report 24128735 (Version 2)
Quarter: 2024Q3

REPORT INFORMATION
  Report Type: Spontaneous
  Country: US (occurrence: US)
  Receive Date: 20240723
  Receipt Date: 20240723
  Transmission Date: 20241016
  Serious: No
  Sender: NOVO NORDISK
  Company Number: US-NOVOPROD-1228652

PATIENT
  Age: 75 Year
  Sex: Male

DRUGS (2)
  1. RYBELSUS [Suspect]
     Active Substance: SEMAGLUTIDE
     Indication: Diabetes mellitus
     Dosage: 3 MG, QD (FOR A MONTH)
     Route: 048
     Dates: start: 202403
  2. RYBELSUS [Suspect]
     Active Substance: SEMAGLUTIDE
     Indication: Diabetes mellitus
     Dosage: 7 MG, QD (FOR A WEEK)
     Route: 048
     Dates: start: 202403

REACTIONS (6)
  - Myalgia [Not Recovered/Not Resolved]
  - Hyperproteinaemia [Recovered/Resolved]
  - Muscle atrophy [Recovered/Resolved]
  - Dry mouth [Recovered/Resolved]
  - Unevaluable event [Recovered/Resolved]
  - Glycosylated haemoglobin increased [Recovered/Resolved]

NARRATIVE: CASE EVENT DATE: 20240301
